FAERS Safety Report 22107834 (Version 5)
Quarter: 2023Q2

REPORT INFORMATION
  Report Type: Spontaneous
  Country: FR (occurrence: FR)
  Receive Date: 20230317
  Receipt Date: 20230420
  Transmission Date: 20230722
  Serious: Yes (Death, Congenital Anomaly, Other)
  Sender: FDA-Public Use
  Company Number: None

PATIENT
  Age: 25 Week

DRUGS (4)
  1. PREZISTA [Suspect]
     Active Substance: DARUNAVIR ETHANOLATE
     Indication: Foetal exposure during pregnancy
     Dosage: 800 MG, QD, ?THERAPY END DATE: 25/JAN/2023
     Route: 064
     Dates: start: 20220809
  2. NORVIR [Suspect]
     Active Substance: RITONAVIR
     Indication: Foetal exposure during pregnancy
     Dosage: 100 MG, QD, ?THERAPY END DATE: 25/JAN/2023
     Route: 064
     Dates: start: 20220809
  3. TRUVADA [Suspect]
     Active Substance: EMTRICITABINE\TENOFOVIR DISOPROXIL FUMARATE
     Indication: Foetal exposure during pregnancy
     Dosage: THERAPY END DATE: 25/JAN/2023
     Route: 064
     Dates: start: 20220809
  4. KARDEGIC [Concomitant]
     Active Substance: ASPIRIN DL-LYSINE
     Indication: Product used for unknown indication
     Route: 065

REACTIONS (2)
  - Congenital multiplex arthrogryposis [Fatal]
  - Foetal exposure during pregnancy [Recovered/Resolved]

NARRATIVE: CASE EVENT DATE: 20220809
